FAERS Safety Report 19303866 (Version 1)
Quarter: 2021Q2

REPORT INFORMATION
  Report Type: Spontaneous
  Country: US (occurrence: US)
  Receive Date: 20210525
  Receipt Date: 20210525
  Transmission Date: 20210717
  Serious: No
  Sender: FDA-Public Use
  Company Number: US-PFIZER INC-2021229159

PATIENT
  Age: 52 Year
  Sex: Female
  Weight: 68.04 kg

DRUGS (1)
  1. ALPRAZOLAM. [Suspect]
     Active Substance: ALPRAZOLAM
     Indication: ANXIETY
     Dosage: 2 MG, 4X/DAY
     Route: 048

REACTIONS (4)
  - Withdrawal syndrome [Not Recovered/Not Resolved]
  - Prescribed overdose [Unknown]
  - Intentional product use issue [Unknown]
  - Product packaging quantity issue [Unknown]

NARRATIVE: CASE EVENT DATE: 20210220
